FAERS Safety Report 4967610-4 (Version None)
Quarter: 2006Q2

REPORT INFORMATION
  Report Type: 
  Country: None (occurrence: None)
  Receive Date: 20060410
  Receipt Date: 20060223
  Transmission Date: 20061013
  Serious: Yes (Hospitalization)
  Sender: FDA-Public Use
  Company Number: US-GILEAD-2006-0009268

PATIENT
  Sex: Male

DRUGS (2)
  1. TRUVADA [Suspect]
     Dates: start: 20050801
  2. SUSTIVA [Concomitant]
     Dates: start: 20050801

REACTIONS (4)
  - HAEMODIALYSIS [None]
  - METABOLIC ACIDOSIS [None]
  - METABOLIC ENCEPHALOPATHY [None]
  - RENAL FAILURE ACUTE [None]
